FAERS Safety Report 11169630 (Version 2)
Quarter: 2015Q3

REPORT INFORMATION
  Report Type: Other
  Country: DE (occurrence: DE)
  Receive Date: 20150605
  Receipt Date: 20150810
  Transmission Date: 20151125
  Serious: Yes (Hospitalization)
  Sender: FDA-Public Use
  Company Number: DE-SPECTRUM PHARMACEUTICALS, INC.-15-M-DE-00190

PATIENT
  Sex: Male

DRUGS (11)
  1. KALINOR-RETARD P [Concomitant]
     Indication: ELECTROLYTE IMBALANCE
     Dosage: 600 MG, 2X DAILY
     Route: 048
     Dates: start: 20150210, end: 20150413
  2. VINCRISTINE SULFATE LIPOSOME [Suspect]
     Active Substance: VINCRISTINE SULFATE
     Indication: NON-HODGKIN^S LYMPHOMA
     Dosage: 3.92 MG, 2- WEEKLY
     Route: 042
     Dates: start: 20150127, end: 20150409
  3. DOXORUBICIN [Suspect]
     Active Substance: DOXORUBICIN
     Indication: NON-HODGKIN^S LYMPHOMA
     Dosage: 98 MG, 2- WEEKLY
     Route: 042
     Dates: start: 20150126, end: 20150409
  4. PANTOPRAZOLE SODIUM. [Concomitant]
     Active Substance: PANTOPRAZOLE SODIUM
     Indication: PROPHYLAXIS AGAINST GASTROINTESTINAL ULCER
     Dosage: 40 MG, TAGL.
     Route: 048
     Dates: start: 20150130
  5. COTRIMOXAZOL [Concomitant]
     Active Substance: SULFAMETHOXAZOLE\TRIMETHOPRIM
     Indication: PROPHYLAXIS
     Dosage: 960 MG, UNK
     Route: 048
     Dates: start: 20150120
  6. MIRTAZAPIN [Concomitant]
     Active Substance: MIRTAZAPINE
     Indication: SLEEP DISORDER
     Dosage: 15 MG, TAGL.
     Route: 048
     Dates: start: 20150210
  7. PREDNISONE. [Suspect]
     Active Substance: PREDNISONE
     Indication: NON-HODGKIN^S LYMPHOMA
     Dosage: 500 MG, 2-WEEKLY
     Route: 048
     Dates: start: 20150122, end: 20150413
  8. RITUXIMAB [Suspect]
     Active Substance: RITUXIMAB
     Indication: NON-HODGKIN^S LYMPHOMA
     Dosage: 740 MG, 2-WEEKLY
     Route: 042
     Dates: start: 20150122, end: 20150409
  9. CYCLOPHOSPHAMIDE. [Suspect]
     Active Substance: CYCLOPHOSPHAMIDE
     Indication: NON-HODGKIN^S LYMPHOMA
     Dosage: 1480 MG, 2-WEEKLY
     Route: 042
     Dates: start: 20150126, end: 20150409
  10. FILGRASTIM [Suspect]
     Active Substance: FILGRASTIM
     Indication: NON-HODGKIN^S LYMPHOMA
     Dosage: 6 MG, 2- WEEKLY D4
     Route: 058
     Dates: start: 20150129, end: 20150412
  11. MCP [Concomitant]
     Active Substance: METOCLOPRAMIDE HYDROCHLORIDE
     Indication: NAUSEA
     Dosage: 10 MG, UNK
     Route: 048
     Dates: start: 20150210

REACTIONS (2)
  - Colitis [Recovered/Resolved]
  - Enteritis [Recovered/Resolved]

NARRATIVE: CASE EVENT DATE: 20150423
